FAERS Safety Report 25949749 (Version 2)
Quarter: 2025Q4

REPORT INFORMATION
  Report Type: Spontaneous
  Country: CN (occurrence: CN)
  Receive Date: 20251022
  Receipt Date: 20251027
  Transmission Date: 20260117
  Serious: Yes (Hospitalization, Other)
  Sender: PFIZER
  Company Number: CN-MLMSERVICE-20251010-PI672309-00218-1

PATIENT
  Age: 55 Year
  Sex: Female

DRUGS (7)
  1. METHOTREXATE SODIUM [Suspect]
     Active Substance: METHOTREXATE SODIUM
     Indication: Ankylosing spondylitis
     Dosage: 10 MG, WEEKLY
     Dates: start: 2013, end: 20200902
  2. TOFACITINIB CITRATE [Suspect]
     Active Substance: TOFACITINIB CITRATE
     Indication: Ankylosing spondylitis
     Dosage: 5 MG, 2X/DAY
     Dates: start: 2013
  3. TOFACITINIB CITRATE [Suspect]
     Active Substance: TOFACITINIB CITRATE
     Dosage: 5 MG, 1X/DAY
     Dates: start: 202008, end: 20200902
  4. INTERFERON [Concomitant]
     Active Substance: INTERFERON
     Indication: Thrombolysis
     Dosage: UNK, EVERY OTHER DAY (ALTERNATE DAY)
     Route: 067
  5. LOXOPROFEN [Concomitant]
     Active Substance: LOXOPROFEN
     Indication: Body temperature increased
     Dosage: 5 MG, AS NEEDED
  6. LEVOFLOXACIN [Concomitant]
     Active Substance: LEVOFLOXACIN
     Dosage: 0.5 G
     Dates: start: 20200816
  7. LEVOFLOXACIN [Concomitant]
     Active Substance: LEVOFLOXACIN
     Dosage: 0.5 G, DAILY
     Route: 067
     Dates: start: 20200902

REACTIONS (1)
  - Rocky mountain spotted fever [Recovered/Resolved]

NARRATIVE: CASE EVENT DATE: 20200801
